FAERS Safety Report 20854988 (Version 1)
Quarter: 2022Q2

REPORT INFORMATION
  Report Type: Spontaneous
  Country: US (occurrence: US)
  Receive Date: 20220520
  Receipt Date: 20220520
  Transmission Date: 20220721
  Serious: No
  Sender: FDA-Public Use
  Company Number: US-PFIZER INC-202200713365

PATIENT
  Age: 60 Year
  Sex: Male

DRUGS (11)
  1. PAXLOVID [Suspect]
     Active Substance: NIRMATRELVIR\RITONAVIR
     Indication: COVID-19 treatment
     Dosage: UNK
     Dates: start: 20220503, end: 20220508
  2. COSANTIN [Concomitant]
     Dosage: UNK
     Dates: start: 20220502
  3. VALTREX [Concomitant]
     Active Substance: VALACYCLOVIR HYDROCHLORIDE
     Dosage: UNK
     Dates: start: 20220103
  4. LINZESS [Concomitant]
     Active Substance: LINACLOTIDE
     Dosage: UNK
     Dates: start: 20220103
  5. ROSUVASTATIN [Concomitant]
     Active Substance: ROSUVASTATIN
     Dosage: UNK
     Dates: start: 20211206
  6. ENSTILAR [Concomitant]
     Active Substance: BETAMETHASONE DIPROPIONATE\CALCIPOTRIENE HYDRATE
     Dosage: UNK
     Dates: start: 20220207
  7. MOMETASONE [Concomitant]
     Active Substance: MOMETASONE
     Dosage: UNK
     Dates: start: 20211206
  8. ASPIRIN [Concomitant]
     Active Substance: ASPIRIN
     Dosage: UNK
     Dates: start: 20220103
  9. MUCINEX D [Concomitant]
     Active Substance: GUAIFENESIN\PSEUDOEPHEDRINE HYDROCHLORIDE
     Dosage: UNK
     Dates: start: 20220103
  10. VITAMIN D NOS [Concomitant]
     Active Substance: VITAMIN D NOS
     Dosage: UNK
     Dates: start: 20220103
  11. FLORASTOR [LACTOBACILLUS ACIDOPHILUS] [Concomitant]
     Dosage: UNK
     Dates: start: 20220103

REACTIONS (2)
  - COVID-19 [Not Recovered/Not Resolved]
  - Disease recurrence [Not Recovered/Not Resolved]

NARRATIVE: CASE EVENT DATE: 20220513
